FAERS Safety Report 9498780 (Version 1)
Quarter: 2013Q3

REPORT INFORMATION
  Report Type: Spontaneous
  Country: US (occurrence: None)
  Receive Date: 20130830
  Receipt Date: 20130830
  Transmission Date: 20140515
  Serious: Yes (Other)
  Sender: FDA-Public Use
  Company Number: 2013SA083540

PATIENT
  Sex: Female

DRUGS (1)
  1. GOLD BOND POWDER SPRAY CLASSIC [Suspect]

REACTIONS (1)
  - Application site burn [None]
